FAERS Safety Report 12537106 (Version 2)
Quarter: 2016Q3

REPORT INFORMATION
  Report Type: Report from Study
  Country: BR (occurrence: BR)
  Receive Date: 20160707
  Receipt Date: 20160712
  Transmission Date: 20161109
  Serious: Yes (Other)
  Sender: FDA-Public Use
  Company Number: BR-JNJFOC-20160519762

PATIENT
  Age: 65 Year
  Sex: Female
  Weight: 67 kg

DRUGS (8)
  1. LOSARTAN. [Concomitant]
     Active Substance: LOSARTAN
     Route: 065
  2. METICORTEN [Concomitant]
     Active Substance: PREDNISONE
  3. ALENDRONATE [Concomitant]
     Active Substance: ALENDRONATE SODIUM
     Route: 065
  4. NAPROXEN. [Concomitant]
     Active Substance: NAPROXEN
     Route: 065
  5. PREDNISONE. [Concomitant]
     Active Substance: PREDNISONE
     Route: 065
  6. SIMPONI [Suspect]
     Active Substance: GOLIMUMAB
     Indication: RHEUMATOID ARTHRITIS
     Route: 058
     Dates: start: 20160422, end: 20160523
  7. BROMAZEPAM [Concomitant]
     Active Substance: BROMAZEPAM
     Route: 065
  8. DIPYRONE [Concomitant]
     Active Substance: DIPYRONE
     Route: 065

REACTIONS (5)
  - Rheumatoid arthritis [Unknown]
  - Drug ineffective [Unknown]
  - Facial operation [Unknown]
  - Influenza [Unknown]
  - Headache [Unknown]

NARRATIVE: CASE EVENT DATE: 201606
